FAERS Safety Report 13145595 (Version 6)
Quarter: 2024Q2

REPORT INFORMATION
  Report Type: Report from Study
  Country: US (occurrence: US)
  Receive Date: 20170124
  Receipt Date: 20240517
  Transmission Date: 20240715
  Serious: Yes (Death, Hospitalization, Disabling, Other)
  Sender: FDA-Public Use
  Company Number: US-SHIRE-US201701264

PATIENT
  Age: 63 Year
  Sex: Female
  Weight: 65 kg

DRUGS (24)
  1. TEDUGLUTIDE [Suspect]
     Active Substance: TEDUGLUTIDE
     Indication: Short-bowel syndrome
     Dosage: 1.8 MILLIGRAM, QD
     Route: 042
     Dates: start: 20160901, end: 20161001
  2. TEDUGLUTIDE [Suspect]
     Active Substance: TEDUGLUTIDE
     Indication: Short-bowel syndrome
     Dosage: 1.8 MILLIGRAM, QD
     Route: 042
     Dates: start: 20160901, end: 20161001
  3. TEDUGLUTIDE [Suspect]
     Active Substance: TEDUGLUTIDE
     Indication: Short-bowel syndrome
     Dosage: 1.8 MILLIGRAM, QD
     Route: 042
     Dates: start: 20160901, end: 20161001
  4. TEDUGLUTIDE [Suspect]
     Active Substance: TEDUGLUTIDE
     Indication: Short-bowel syndrome
     Dosage: 1.8 MILLIGRAM, QD
     Route: 042
     Dates: start: 20160901, end: 20161001
  5. KLOR-CON [Concomitant]
     Active Substance: POTASSIUM CHLORIDE
     Indication: Electrolyte imbalance
     Dosage: UNK
     Route: 048
     Dates: start: 20161121, end: 20161125
  6. ASCORBIC ACID\IRON [Concomitant]
     Active Substance: ASCORBIC ACID\IRON
     Indication: Anaemia
     Dosage: UNK UNK, QD
     Route: 048
     Dates: start: 20161121, end: 20161125
  7. FOLIC ACID [Concomitant]
     Active Substance: FOLIC ACID
     Indication: Anaemia
     Dosage: 1 MILLIGRAM, QD
     Route: 048
     Dates: start: 20161121, end: 20161130
  8. .BETA.-HYDROXYISOVALERIC ACID\ARGININE\GLUTAMINE [Concomitant]
     Active Substance: .BETA.-HYDROXYISOVALERIC ACID\ARGININE\GLUTAMINE
     Indication: Malnutrition
     Dosage: 1 INTERNATIONAL UNIT, BID
     Route: 048
     Dates: start: 20161118, end: 20161125
  9. SODIUM CHLORIDE [Concomitant]
     Active Substance: SODIUM CHLORIDE
     Indication: Nausea
     Dosage: UNK
     Route: 065
  10. SODIUM CHLORIDE [Concomitant]
     Active Substance: SODIUM CHLORIDE
     Indication: Vomiting
  11. PROMETHAZINE [Concomitant]
     Active Substance: PROMETHAZINE HYDROCHLORIDE
     Indication: Nausea
     Dosage: UNK
     Route: 065
  12. PROMETHAZINE [Concomitant]
     Active Substance: PROMETHAZINE HYDROCHLORIDE
     Indication: Vomiting
  13. ZOFRAN [Concomitant]
     Active Substance: ONDANSETRON HYDROCHLORIDE
     Dosage: UNK
     Route: 065
  14. FOLVITE [Concomitant]
     Active Substance: FOLIC ACID
     Dosage: UNK
     Route: 065
  15. CYANOCOBALAMIN [Concomitant]
     Active Substance: CYANOCOBALAMIN
     Dosage: UNK
     Route: 065
  16. VITAMIN B COMPLEX [Concomitant]
     Active Substance: CYANOCOBALAMIN\DEXPANTHENOL\NIACINAMIDE\PYRIDOXINE HYDROCHLORIDE\RIBOFLAVIN 5^-PHOSPHATE SODIUM\THIA
     Dosage: UNK
     Route: 065
  17. CALCIUM CARBONATE [Concomitant]
     Active Substance: CALCIUM CARBONATE
     Dosage: UNK
     Route: 065
  18. VITAMIN D3 [Concomitant]
     Active Substance: CHOLECALCIFEROL
     Dosage: UNK
     Route: 065
  19. LACTOBACILLUS ACIDOPHILUS\LACTOBACILLUS DELBRUECKII SUBSP. BULGARICUS [Concomitant]
     Active Substance: LACTOBACILLUS ACIDOPHILUS\LACTOBACILLUS DELBRUECKII SUBSP. BULGARICUS
     Dosage: UNK
     Route: 065
  20. SODIUM BICARBONATE [Concomitant]
     Active Substance: SODIUM BICARBONATE
     Dosage: UNK
     Route: 065
  21. MICATIN [Concomitant]
     Active Substance: MICONAZOLE NITRATE
     Dosage: UNK
     Route: 065
  22. MAGNESIUM OXIDE [Concomitant]
     Active Substance: MAGNESIUM OXIDE
     Indication: Electrolyte imbalance
     Dosage: 400 MILLIGRAM, BID
     Route: 048
     Dates: start: 20161126, end: 20161218
  23. LORAZEPAM [Concomitant]
     Active Substance: LORAZEPAM
     Indication: Prophylaxis
     Dosage: 1 MILLIGRAM
     Route: 042
     Dates: start: 20161115, end: 20161125
  24. LEXAPRO [Concomitant]
     Active Substance: ESCITALOPRAM OXALATE
     Indication: Prophylaxis
     Dosage: 10 MILLIGRAM, QD
     Route: 048
     Dates: start: 20161116, end: 20161125

REACTIONS (2)
  - Cervix carcinoma recurrent [Fatal]
  - Female genital tract fistula [Recovered/Resolved]

NARRATIVE: CASE EVENT DATE: 20161223
